FAERS Safety Report 9531762 (Version 1)
Quarter: 2013Q3

REPORT INFORMATION
  Report Type: Spontaneous
  Country: US (occurrence: None)
  Receive Date: 20130917
  Receipt Date: 20130917
  Transmission Date: 20140515
  Serious: Yes (Other)
  Sender: FDA-Public Use
  Company Number: None

PATIENT
  Age: 27 Year
  Sex: Male
  Weight: 79 kg

DRUGS (1)
  1. PANITUMUMAB [Suspect]
     Indication: CHOLANGIOCARCINOMA
     Route: 042
     Dates: start: 20101201, end: 20111024

REACTIONS (1)
  - Rash maculo-papular [None]
